FAERS Safety Report 8409092-6 (Version None)
Quarter: 2012Q2

REPORT INFORMATION
  Report Type: 
  Country: None (occurrence: None)
  Receive Date: 20120604
  Receipt Date: 20120528
  Transmission Date: 20120825
  Serious: Yes (Other)
  Sender: FDA-Public Use
  Company Number: JP-PFIZER INC-2012127639

PATIENT
  Age: 83 Year
  Sex: Female

DRUGS (5)
  1. OPALMON [Concomitant]
     Dosage: UNK
  2. BUPRENORPHINE [Concomitant]
     Dosage: UNK
     Dates: start: 20110101
  3. LOXONIN [Concomitant]
     Dosage: THREE TABLETS IN THREE TIMES/DAY
     Dates: start: 20120421
  4. LANSOPRAZOLE [Concomitant]
     Dosage: UNK
  5. LYRICA [Suspect]
     Dosage: 75 MG, 2X/DAY
     Route: 048

REACTIONS (2)
  - HAEMORRHAGE SUBCUTANEOUS [None]
  - HERPES ZOSTER [None]
